FAERS Safety Report 4414042-3 (Version None)
Quarter: 2004Q3

REPORT INFORMATION
  Report Type: 
  Country: None (occurrence: None)
  Receive Date: 20040803
  Receipt Date: 20040708
  Transmission Date: 20050211
  Serious: Yes (Life-Threatening)
  Sender: FDA-Public Use
  Company Number: GB-GLAXOSMITHKLINE-B0338395A

PATIENT
  Age: 59 Year
  Sex: Female
  Weight: 75 kg

DRUGS (3)
  1. LAMICTAL [Suspect]
     Indication: PARTIAL SEIZURES
     Dosage: 200MG TWICE PER DAY
     Route: 065
  2. COPROXAMOL [Suspect]
     Indication: PARTIAL SEIZURES
     Route: 065
     Dates: start: 20040628
  3. NO CONCURRENT MEDICATION [Concomitant]

REACTIONS (3)
  - DRUG INTERACTION [None]
  - GRAND MAL CONVULSION [None]
  - STRESS SYMPTOMS [None]
